FAERS Safety Report 12602865 (Version 1)
Quarter: 2016Q3

REPORT INFORMATION
  Report Type: Spontaneous
  Country: RU (occurrence: RU)
  Receive Date: 20160728
  Receipt Date: 20160728
  Transmission Date: 20161109
  Serious: Yes (Hospitalization)
  Sender: FDA-Public Use
  Company Number: RU-PFIZER INC-2016354153

PATIENT
  Age: 42 Year
  Sex: Male

DRUGS (3)
  1. INLYTA [Suspect]
     Active Substance: AXITINIB
     Dosage: 14 MG, UNK
     Route: 048
  2. INLYTA [Suspect]
     Active Substance: AXITINIB
     Dosage: 20 MG, UNK
     Route: 048
     Dates: end: 20160526
  3. INLYTA [Suspect]
     Active Substance: AXITINIB
     Indication: METASTATIC RENAL CELL CARCINOMA
     Dosage: 10 MG, UNK
     Route: 048
     Dates: start: 20160309

REACTIONS (3)
  - Metastatic renal cell carcinoma [Unknown]
  - Disease progression [Unknown]
  - Lung abscess [Recovering/Resolving]

NARRATIVE: CASE EVENT DATE: 20160521
